FAERS Safety Report 6433593-3 (Version None)
Quarter: 2009Q4

REPORT INFORMATION
  Report Type: 
  Country: None (occurrence: None)
  Receive Date: 20091106
  Receipt Date: 20091106
  Transmission Date: 20100525
  Serious: No
  Sender: FDA-Public Use
  Company Number: None

PATIENT
  Sex: Female
  Weight: 53.0709 kg

DRUGS (1)
  1. LEVOTHYROXINE SODIUM [Suspect]
     Indication: THYROID DISORDER
     Dosage: 75 MCG DAILY  7AM DAILY SEVERAL MONTHS

REACTIONS (5)
  - ALOPECIA [None]
  - PRODUCT SUBSTITUTION ISSUE [None]
  - PRURITUS [None]
  - SWELLING [None]
  - URTICARIA [None]
